FAERS Safety Report 16367873 (Version 1)
Quarter: 2019Q2

REPORT INFORMATION
  Report Type: Spontaneous
  Country: US (occurrence: US)
  Receive Date: 20190422
  Receipt Date: 20190422
  Transmission Date: 20190711
  Serious: Yes (Death)
  Sender: FDA-Public Use
  Company Number: None

PATIENT
  Age: 68 Year
  Sex: Male
  Weight: 67 kg

DRUGS (1)
  1. CAPECITABINE. [Suspect]
     Active Substance: CAPECITABINE
     Indication: COLON CANCER METASTATIC
     Route: 048
     Dates: start: 20190315, end: 20190325

REACTIONS (6)
  - Leukopenia [None]
  - Rash [None]
  - Thrombocytopenia [None]
  - Pyrexia [None]
  - Stevens-Johnson syndrome [None]
  - Sepsis [None]

NARRATIVE: CASE EVENT DATE: 20190322
